FAERS Safety Report 23747459 (Version 1)
Quarter: 2024Q2

REPORT INFORMATION
  Report Type: Spontaneous
  Country: US (occurrence: None)
  Receive Date: 20240415
  Receipt Date: 20240415
  Transmission Date: 20240716
  Serious: No
  Sender: FDA-Public Use
  Company Number: None

PATIENT
  Age: 69 Year
  Sex: Female
  Weight: 65.1 kg

DRUGS (22)
  1. JARDIANCE [Suspect]
     Active Substance: EMPAGLIFLOZIN
     Indication: Type 2 diabetes mellitus
     Dosage: FREQUENCY : DAILY;?
     Route: 048
  2. ACIDOPHILUS PROBIOTIC BLEND [Concomitant]
  3. ALDACTONE [Concomitant]
     Active Substance: SPIRONOLACTONE
  4. AMLODIPINE BESYLATE [Concomitant]
     Active Substance: AMLODIPINE BESYLATE
  5. ASPIRIN [Concomitant]
     Active Substance: ASPIRIN
  6. Atorvastatin 4 mg [Concomitant]
  7. BUSPIRONE HYDROCHLORIDE [Concomitant]
     Active Substance: BUSPIRONE HYDROCHLORIDE
  8. CITALOPRAM [Concomitant]
     Active Substance: CITALOPRAM\CITALOPRAM HYDROBROMIDE
  9. ESTRADIOL [Concomitant]
     Active Substance: ESTRADIOL
  10. Fenofibrate 200 mg [Concomitant]
  11. GABAPENTIN [Concomitant]
     Active Substance: GABAPENTIN
  12. JANUVIA [Concomitant]
     Active Substance: SITAGLIPTIN PHOSPHATE
  13. LEVOTHYROXINE [Concomitant]
     Active Substance: LEVOTHYROXINE\LEVOTHYROXINE SODIUM
  14. LOSARTAN [Concomitant]
     Active Substance: LOSARTAN
  15. METFORMIN [Concomitant]
     Active Substance: METFORMIN HYDROCHLORIDE
  16. OMEPRAZOLE [Concomitant]
     Active Substance: OMEPRAZOLE
  17. TOUJEO MAX [Concomitant]
     Active Substance: INSULIN GLARGINE
  18. Trazadone 100 mg (up to 76 units daily) [Concomitant]
  19. Vascepa 1000 mg [Concomitant]
  20. XANAX [Concomitant]
     Active Substance: ALPRAZOLAM
  21. ZOLPIDEM [Concomitant]
     Active Substance: ZOLPIDEM TARTRATE
  22. Zinc acetate 50 mg [Concomitant]

REACTIONS (3)
  - Euglycaemic diabetic ketoacidosis [None]
  - Metabolic acidosis [None]
  - Kussmaul respiration [None]

NARRATIVE: CASE EVENT DATE: 20240414
